FAERS Safety Report 15644458 (Version 1)
Quarter: 2018Q4

REPORT INFORMATION
  Report Type: Spontaneous
  Country: US (occurrence: US)
  Receive Date: 20181121
  Receipt Date: 20181121
  Transmission Date: 20190205
  Serious: Yes (Death)
  Sender: FDA-Public Use
  Company Number: None

PATIENT
  Age: 70 Year
  Sex: Male

DRUGS (1)
  1. TEMOZOLOMIDE. [Suspect]
     Active Substance: TEMOZOLOMIDE
     Indication: BRAIN NEOPLASM MALIGNANT
     Dosage: ?          OTHER FREQUENCY:FOR 5 DAYS EVRY 28;?
     Route: 048
     Dates: start: 20180604, end: 20181024

REACTIONS (1)
  - Death [None]

NARRATIVE: CASE EVENT DATE: 20181111
